FAERS Safety Report 5838721-6 (Version None)
Quarter: 2008Q3

REPORT INFORMATION
  Report Type: 
  Country: None (occurrence: None)
  Receive Date: 20080808
  Receipt Date: 20080807
  Transmission Date: 20090109
  Serious: Yes (Life-Threatening, Hospitalization)
  Sender: FDA-Public Use
  Company Number: B0531944A

PATIENT
  Age: 47 Year
  Sex: Female
  Weight: 40 kg

DRUGS (14)
  1. FLOLAN [Suspect]
     Route: 042
     Dates: start: 20060928
  2. FUROSEMIDE [Concomitant]
     Route: 048
  3. SPIRONOLACTONE [Concomitant]
     Route: 048
  4. ACARDI [Concomitant]
     Indication: PULMONARY HYPERTENSION
     Route: 048
     Dates: start: 20051201
  5. MYONAL [Concomitant]
     Route: 048
  6. DOBUTREX [Concomitant]
  7. PREDONINE [Concomitant]
     Route: 048
  8. BERAPROST SODIUM [Concomitant]
     Route: 048
  9. FLUITRAN [Concomitant]
     Route: 048
  10. OXYCONTIN [Concomitant]
     Route: 048
  11. DIAMOX SRC [Concomitant]
     Route: 048
  12. LUPRAC [Concomitant]
     Route: 048
  13. KALGUT [Concomitant]
     Route: 048
  14. GABAPENTIN [Concomitant]
     Route: 048

REACTIONS (4)
  - CARDIAC FAILURE [None]
  - CARDIAC FAILURE CONGESTIVE [None]
  - MYALGIA [None]
  - PAIN [None]
